FAERS Safety Report 7006648-2 (Version None)
Quarter: 2010Q3

REPORT INFORMATION
  Report Type: 
  Country: None (occurrence: None)
  Receive Date: 20100921
  Receipt Date: 20100921
  Transmission Date: 20110219
  Serious: Yes (Other)
  Sender: FDA-Public Use
  Company Number: None

PATIENT
  Age: 41 Year
  Sex: Female
  Weight: 58.9676 kg

DRUGS (2)
  1. CIPROFLOXACIN HCL [Suspect]
     Indication: KIDNEY INFECTION
     Dosage: 500 MG 2X/DAY BY MOUTH 8/25/10 (PM) - 8/28/10 (AM)
     Route: 048
     Dates: start: 20100825, end: 20100828
  2. CIPROFLOXACIN HCL [Suspect]
     Indication: URINARY TRACT INFECTION
     Dosage: 500 MG 2X/DAY BY MOUTH 8/25/10 (PM) - 8/28/10 (AM)
     Route: 048
     Dates: start: 20100825, end: 20100828

REACTIONS (4)
  - ARTHRALGIA [None]
  - JOINT SWELLING [None]
  - OEDEMA PERIPHERAL [None]
  - SKIN BURNING SENSATION [None]
